FAERS Safety Report 15567783 (Version 1)
Quarter: 2018Q4

REPORT INFORMATION
  Report Type: Spontaneous
  Country: US (occurrence: US)
  Receive Date: 20181030
  Receipt Date: 20181030
  Transmission Date: 20190205
  Serious: No
  Sender: FDA-Public Use
  Company Number: US-RISING PHARMACEUTICALS, INC.-2017RIS00398

PATIENT
  Age: 47 Year
  Sex: Female
  Weight: 68.03 kg

DRUGS (9)
  1. CROMOLYN SODIUM. [Suspect]
     Active Substance: CROMOLYN SODIUM
     Indication: MAST CELL ACTIVATION SYNDROME
     Dosage: 100 MG, 4X/DAY
     Route: 048
     Dates: start: 20171117, end: 20171128
  2. MONTELUKAST [Concomitant]
     Active Substance: MONTELUKAST SODIUM
  3. QUERCETIN [Concomitant]
     Active Substance: QUERCETIN
  4. PREDNISONE. [Concomitant]
     Active Substance: PREDNISONE
  5. LORATADINE. [Concomitant]
     Active Substance: LORATADINE
  6. CROMOLYN SODIUM. [Suspect]
     Active Substance: CROMOLYN SODIUM
     Dosage: 100 MG, 1X/DAY
     Route: 048
     Dates: start: 20171130, end: 20171201
  7. NALTREXONE [Concomitant]
     Active Substance: NALTREXONE
  8. CROMOLYN SODIUM. [Suspect]
     Active Substance: CROMOLYN SODIUM
     Dosage: 33 MG, 1X/DAY IN THE MORNING
     Route: 048
     Dates: start: 20171129, end: 20171129
  9. CROMOLYN SODIUM. [Suspect]
     Active Substance: CROMOLYN SODIUM
     Dosage: 66 MG, 1X/DAY AROUND DINNERTIME
     Route: 048
     Dates: start: 20171129, end: 20171129

REACTIONS (7)
  - Inflammation [Recovered/Resolved]
  - Arthralgia [Not Recovered/Not Resolved]
  - Pain [Not Recovered/Not Resolved]
  - Myalgia [Not Recovered/Not Resolved]
  - Drug ineffective [Not Recovered/Not Resolved]
  - Dyspepsia [Not Recovered/Not Resolved]
  - Malaise [Recovered/Resolved]

NARRATIVE: CASE EVENT DATE: 20171128
